FAERS Safety Report 20344379 (Version 1)
Quarter: 2022Q1

REPORT INFORMATION
  Report Type: Spontaneous
  Country: US (occurrence: US)
  Receive Date: 20220118
  Receipt Date: 20220118
  Transmission Date: 20220423
  Serious: No
  Sender: FDA-Public Use
  Company Number: US-SANOFI-00921862

PATIENT
  Sex: Male

DRUGS (2)
  1. LANTUS SOLOSTAR [Suspect]
     Active Substance: INSULIN GLARGINE
     Indication: Diabetes mellitus
     Dosage: UNK, QD
     Dates: start: 19970813
  2. INSULIN NOS [Suspect]
     Active Substance: INSULIN NOS

REACTIONS (2)
  - Injection site erythema [Unknown]
  - Injection site reaction [Unknown]
